FAERS Safety Report 18135073 (Version 1)
Quarter: 2020Q3

REPORT INFORMATION
  Report Type: Spontaneous
  Country: CA (occurrence: CA)
  Receive Date: 20200811
  Receipt Date: 20200811
  Transmission Date: 20201103
  Serious: Yes (Other)
  Sender: FDA-Public Use
  Company Number: NVSC2020CA220042

PATIENT
  Age: 64 Year
  Sex: Female

DRUGS (3)
  1. LETROZOLE. [Suspect]
     Active Substance: LETROZOLE
     Indication: PRODUCT USED FOR UNKNOWN INDICATION
     Dosage: UNK
     Route: 065
  2. ZOLEDRONIC ACID [Suspect]
     Active Substance: ZOLEDRONIC ACID
     Indication: PRODUCT USED FOR UNKNOWN INDICATION
     Dosage: UNK
     Route: 065
  3. IBRANCE [Suspect]
     Active Substance: PALBOCICLIB
     Indication: PRODUCT USED FOR UNKNOWN INDICATION
     Dosage: 125 MG, CYCLIC (21 DAYS WITH 7 DAYS OFF)
     Route: 065
     Dates: start: 20190520, end: 20200518

REACTIONS (9)
  - Anxiety [Unknown]
  - Neoplasm progression [Unknown]
  - Dyspnoea [Unknown]
  - Tooth abscess [Not Recovered/Not Resolved]
  - Onychomadesis [Recovering/Resolving]
  - Peripheral swelling [Unknown]
  - Nail discolouration [Not Recovered/Not Resolved]
  - Influenza [Unknown]
  - Taste disorder [Unknown]

NARRATIVE: CASE EVENT DATE: 201910
